FAERS Safety Report 23453385 (Version 4)
Quarter: 2024Q2

REPORT INFORMATION
  Report Type: Report from Study
  Country: JP (occurrence: JP)
  Receive Date: 20240129
  Receipt Date: 20240629
  Transmission Date: 20240716
  Serious: Yes (Hospitalization)
  Sender: FDA-Public Use
  Company Number: JP-ABBVIE-4748872

PATIENT
  Age: 49 Year
  Sex: Female
  Weight: 40 kg

DRUGS (6)
  1. RINVOQ [Suspect]
     Active Substance: UPADACITINIB
     Indication: Colitis ulcerative
     Dosage: FORM STRENGTH: 45 MILLIGRAMS,?LAST ADMIN DATE: 2023
     Route: 048
     Dates: start: 20230420
  2. RINVOQ [Suspect]
     Active Substance: UPADACITINIB
     Indication: Colitis ulcerative
     Dosage: FORM STRENGTH: 30 MILLIGRAMS?DRUG END DATE -2023
     Route: 048
     Dates: start: 20230608
  3. RINVOQ [Suspect]
     Active Substance: UPADACITINIB
     Indication: Colitis ulcerative
     Dosage: FORM STRENGTH: 15 MILLIGRAMS
     Route: 048
     Dates: start: 20230706, end: 20231026
  4. VONOPRAZAN FUMARATE [Concomitant]
     Active Substance: VONOPRAZAN FUMARATE
     Indication: Vomiting
     Dosage: FORM STRENGTH: 20 MILLIGRAM
     Route: 048
     Dates: start: 20230427, end: 20230817
  5. BUDESON [Concomitant]
     Indication: Colitis ulcerative
     Route: 048
  6. PREDNISOLONE [Concomitant]
     Active Substance: PREDNISOLONE
     Indication: Colitis ulcerative

REACTIONS (6)
  - Vomiting [Recovered/Resolved]
  - Frequent bowel movements [Not Recovered/Not Resolved]
  - Colitis ulcerative [Recovering/Resolving]
  - Therapeutic product effect incomplete [Unknown]
  - Gastritis [Recovered/Resolved]
  - Condition aggravated [Recovering/Resolving]

NARRATIVE: CASE EVENT DATE: 20230101
